FAERS Safety Report 11170702 (Version 1)
Quarter: 2015Q2

REPORT INFORMATION
  Report Type: Spontaneous
  Country: US (occurrence: US)
  Receive Date: 20150608
  Receipt Date: 20150608
  Transmission Date: 20150821
  Serious: Yes (Hospitalization, Other)
  Sender: FDA-Public Use
  Company Number: US-ABBVIE-15P-163-1400938-00

PATIENT
  Age: 31 Year
  Sex: Female

DRUGS (6)
  1. PRENATAL VITAMINS [Concomitant]
     Active Substance: VITAMINS
     Indication: PREGNANCY
  2. HUMIRA [Suspect]
     Active Substance: ADALIMUMAB
     Indication: RHEUMATOID ARTHRITIS
     Route: 058
     Dates: start: 2013, end: 2014
  3. HUMIRA [Suspect]
     Active Substance: ADALIMUMAB
     Dosage: STOPPED AT 3RD TRIMESTER OF PREGNANCY
     Route: 058
     Dates: start: 2014, end: 201412
  4. PREDNISONE. [Concomitant]
     Active Substance: PREDNISONE
     Indication: RHEUMATOID ARTHRITIS
  5. PRENATAL VITAMINS [Concomitant]
     Active Substance: VITAMINS
     Indication: VITAMIN SUPPLEMENTATION
  6. HUMIRA [Suspect]
     Active Substance: ADALIMUMAB
     Dosage: STARTED A THIRD TRIMESTER OF PREGNANCY
     Route: 058
     Dates: start: 201412

REACTIONS (8)
  - Foetal heart rate deceleration abnormality [Recovered/Resolved]
  - Prolonged labour [Recovered/Resolved]
  - Thrombosis [Recovered/Resolved]
  - Blood pressure decreased [Recovered/Resolved]
  - Postpartum haemorrhage [Recovered/Resolved]
  - Rheumatoid arthritis [Recovered/Resolved]
  - Exposure during pregnancy [Unknown]
  - Abdominal wound dehiscence [Recovered/Resolved]

NARRATIVE: CASE EVENT DATE: 20141201
